FAERS Safety Report 6315842-5 (Version None)
Quarter: 2009Q3

REPORT INFORMATION
  Report Type: 
  Country: None (occurrence: None)
  Receive Date: 20090818
  Receipt Date: 20090804
  Transmission Date: 20100115
  Serious: Yes (Death)
  Sender: FDA-Public Use
  Company Number: 2009AL003020

PATIENT
  Age: 86 Year
  Sex: Male

DRUGS (27)
  1. DIGOXIN [Suspect]
     Dosage: 0.125MG, PO; 0.25MG, PO
     Route: 048
     Dates: start: 20060216
  2. PAROXETINE HCL [Concomitant]
  3. ACCUPRIL [Concomitant]
  4. LIPITOR [Concomitant]
  5. OCUFLOX [Concomitant]
  6. WARFARIN SODIUM [Concomitant]
  7. ACULAR [Concomitant]
  8. PREDNISOLONE [Concomitant]
  9. ALBUTEROL [Concomitant]
  10. FUROSEMIDE [Concomitant]
  11. POTASSIUM CHLORIDE [Concomitant]
  12. ZAROXOLYN [Concomitant]
  13. GLUCOTROL X1 [Concomitant]
  14. METFORMIN HCL [Concomitant]
  15. AMOXICILLIN [Concomitant]
  16. MEPHYTON [Concomitant]
  17. PENICILLIN VK [Concomitant]
  18. LOVENOX [Concomitant]
  19. CUTIVATE [Concomitant]
  20. CIPRO [Concomitant]
  21. NEURONTIN [Concomitant]
  22. SANTYL [Concomitant]
  23. AUGMENTIN XR [Concomitant]
  24. ECONAZOLE NITRATE [Concomitant]
  25. VITAMIN K [Concomitant]
  26. PLAVIX [Concomitant]
  27. FERROUS SULFATE TAB [Concomitant]

REACTIONS (6)
  - CARDIO-RESPIRATORY ARREST [None]
  - ECONOMIC PROBLEM [None]
  - MULTIPLE INJURIES [None]
  - SURGERY [None]
  - UNRESPONSIVE TO STIMULI [None]
  - VENTRICULAR FIBRILLATION [None]
